FAERS Safety Report 7074461-6 (Version None)
Quarter: 2010Q4

REPORT INFORMATION
  Report Type: 
  Country: None (occurrence: None)
  Receive Date: 20101029
  Receipt Date: 20101022
  Transmission Date: 20110411
  Serious: Yes (Hospitalization)
  Sender: FDA-Public Use
  Company Number: US-US-EMD SERONO, INC.-7023938

PATIENT
  Sex: Female

DRUGS (2)
  1. REBIF [Suspect]
     Indication: PRODUCT USED FOR UNKNOWN INDICATION
     Route: 058
     Dates: start: 20100823
  2. UNSPECIFIED MEDICATION [Suspect]
     Indication: MUSCULAR WEAKNESS
     Dates: start: 20101001, end: 20101001

REACTIONS (4)
  - HEADACHE [None]
  - MUSCULAR WEAKNESS [None]
  - RASH [None]
  - VOMITING [None]
